FAERS Safety Report 8680890 (Version 5)
Quarter: 2014Q3

REPORT INFORMATION
  Report Type: Spontaneous
  Country: US (occurrence: US)
  Receive Date: 20120724
  Receipt Date: 20140723
  Transmission Date: 20150326
  Serious: Yes (Other)
  Sender: FDA-Public Use
  Company Number: US-009507513-2011SP035862

PATIENT
  Sex: Female
  Weight: 90.72 kg

DRUGS (3)
  1. NUVARING [Suspect]
     Active Substance: ETHINYL ESTRADIOL\ETONOGESTREL
     Indication: CONTRACEPTION
     Dosage: UNK
     Dates: start: 2005, end: 200708
  2. IMITREX [Concomitant]
     Active Substance: SUMATRIPTAN\SUMATRIPTAN SUCCINATE
     Indication: MIGRAINE
     Dates: start: 2004
  3. NUVARING [Suspect]
     Active Substance: ETHINYL ESTRADIOL\ETONOGESTREL
     Dosage: UNK

REACTIONS (22)
  - Bronchitis [Unknown]
  - Polycystic ovaries [Unknown]
  - Cyst [Unknown]
  - Dermal cyst [Unknown]
  - Thrombophlebitis superficial [Unknown]
  - Cholelithiasis [Unknown]
  - Oedema peripheral [Unknown]
  - Road traffic accident [Unknown]
  - Deep vein thrombosis [Unknown]
  - Anxiety [Unknown]
  - Otitis externa [Unknown]
  - Dyspepsia [Unknown]
  - Metrorrhagia [Unknown]
  - Back pain [Unknown]
  - Laceration [Unknown]
  - Thrombosis [Not Recovered/Not Resolved]
  - Headache [Unknown]
  - Menstruation irregular [Unknown]
  - VIIth nerve paralysis [Recovered/Resolved]
  - Gastrooesophageal reflux disease [Unknown]
  - VIIth nerve paralysis [Unknown]
  - Herpes zoster [Unknown]

NARRATIVE: CASE EVENT DATE: 200611
